FAERS Safety Report 7623549-7 (Version None)
Quarter: 2011Q3

REPORT INFORMATION
  Report Type: 
  Country: None (occurrence: None)
  Receive Date: 20110720
  Receipt Date: 20110705
  Transmission Date: 20111222
  Serious: Yes (Other)
  Sender: FDA-Public Use
  Company Number: SE-SANOFI-AVENTIS-2011SA044357

PATIENT
  Age: 71 Year
  Sex: Male
  Weight: 91 kg

DRUGS (8)
  1. DRONEDARONE HCL [Suspect]
     Indication: ATRIAL FIBRILLATION
     Route: 048
     Dates: start: 20110330
  2. METOPROLOL TARTRATE [Concomitant]
     Route: 065
  3. FUROSEMIDE [Concomitant]
     Route: 065
  4. FUROSEMIDE [Concomitant]
     Route: 065
     Dates: start: 20110426
  5. WARFARIN SODIUM [Concomitant]
     Route: 065
  6. METOPROLOL TARTRATE [Concomitant]
     Route: 065
     Dates: start: 20110406
  7. SIMVASTATIN [Concomitant]
     Route: 065
  8. FUROSEMIDE [Concomitant]
     Route: 065
     Dates: start: 20110406

REACTIONS (1)
  - CARDIAC FAILURE [None]
